FAERS Safety Report 21979157 (Version 3)
Quarter: 2023Q2

REPORT INFORMATION
  Report Type: Spontaneous
  Country: JP (occurrence: JP)
  Receive Date: 20230210
  Receipt Date: 20230601
  Transmission Date: 20230721
  Serious: Yes (Death, Life-Threatening, Hospitalization)
  Sender: FDA-Public Use
  Company Number: JP-DSJP-DSJ-2023-103765

PATIENT
  Age: 72 Year
  Sex: Male
  Weight: 52.3 kg

DRUGS (3)
  1. ENHERTU [Suspect]
     Active Substance: FAM-TRASTUZUMAB DERUXTECAN-NXKI
     Indication: Adenocarcinoma gastric
     Dosage: 4.48 MG/KG, ONCE EVERY 3 WK
     Route: 041
     Dates: start: 20221101, end: 20221101
  2. ENHERTU [Suspect]
     Active Substance: FAM-TRASTUZUMAB DERUXTECAN-NXKI
     Dosage: 4.48 MG/KG, ONCE EVERY 3 WK
     Route: 041
     Dates: start: 20221122, end: 20221122
  3. ENHERTU [Suspect]
     Active Substance: FAM-TRASTUZUMAB DERUXTECAN-NXKI
     Dosage: 4.48 MG/KG, ONCE EVERY 3 WK
     Route: 041
     Dates: start: 20221213, end: 20221213

REACTIONS (5)
  - Varicose vein [Unknown]
  - Haematemesis [Unknown]
  - Pulmonary toxicity [Recovering/Resolving]
  - Disease progression [Fatal]
  - Underdose [Unknown]

NARRATIVE: CASE EVENT DATE: 20221101
